FAERS Safety Report 14127926 (Version 2)
Quarter: 2017Q4

REPORT INFORMATION
  Report Type: Spontaneous
  Country: US (occurrence: US)
  Receive Date: 20171026
  Receipt Date: 20171027
  Transmission Date: 20180321
  Serious: No
  Sender: FDA-Public Use
  Company Number: US-PFIZER INC-2017458411

PATIENT
  Age: 81 Year
  Sex: Male
  Weight: 81.65 kg

DRUGS (2)
  1. LYRICA [Suspect]
     Active Substance: PREGABALIN
     Indication: HERPES ZOSTER
     Dosage: UNK UNK, 2X/DAY
     Dates: start: 201710, end: 201710
  2. FLOXIN [Suspect]
     Active Substance: OFLOXACIN
     Indication: EAR PAIN
     Dosage: FIVE DROPS TO LEFT EAR TWICE DAILY

REACTIONS (1)
  - Drug ineffective [Unknown]
